FAERS Safety Report 14958288 (Version 1)
Quarter: 2018Q2

REPORT INFORMATION
  Report Type: Spontaneous
  Country: US (occurrence: US)
  Receive Date: 20180531
  Receipt Date: 20180531
  Transmission Date: 20180711
  Serious: Yes (Disabling)
  Sender: FDA-Public Use
  Company Number: US-HLSUS-2018-US-000426

PATIENT
  Age: 13 Year
  Sex: Male

DRUGS (3)
  1. FLUVOXAMINE [Suspect]
     Active Substance: FLUVOXAMINE
     Indication: MAJOR DEPRESSION
  2. CLOZAPINE. [Suspect]
     Active Substance: CLOZAPINE
     Indication: SCHIZOPHRENIA
  3. ABILIFY [Suspect]
     Active Substance: ARIPIPRAZOLE
     Indication: PRODUCT USED FOR UNKNOWN INDICATION
     Dosage: 15 MG
     Dates: start: 20180413, end: 20180430

REACTIONS (6)
  - Drug intolerance [Recovered/Resolved with Sequelae]
  - Reflexes abnormal [Recovered/Resolved with Sequelae]
  - Asthenia [Recovered/Resolved with Sequelae]
  - Seizure [Recovered/Resolved with Sequelae]
  - Frequent bowel movements [Recovered/Resolved with Sequelae]
  - Vision blurred [Recovered/Resolved with Sequelae]

NARRATIVE: CASE EVENT DATE: 20180418
